FAERS Safety Report 21215856 (Version 1)
Quarter: 2022Q3

REPORT INFORMATION
  Report Type: Spontaneous
  Country: US (occurrence: None)
  Receive Date: 20220815
  Receipt Date: 20220815
  Transmission Date: 20221027
  Serious: Yes (Hospitalization)
  Sender: FDA-Public Use
  Company Number: None

PATIENT
  Age: 18 Year
  Sex: Female
  Weight: 64.7 kg

DRUGS (5)
  1. PAXLOVID [Suspect]
     Active Substance: NIRMATRELVIR\RITONAVIR
     Indication: COVID-19
     Dosage: FREQUENCY : TWICE A DAY;?
     Dates: start: 20220807, end: 20220811
  2. ceterizine 10mg [Concomitant]
     Dates: start: 20220807, end: 20220811
  3. dexamethasone 6mg [Concomitant]
     Dates: start: 20220807, end: 20220811
  4. IBUPROFEN [Concomitant]
     Active Substance: IBUPROFEN
     Dates: start: 20220807, end: 20220811
  5. Zinc Sulfate 220 mg [Concomitant]
     Dates: start: 20220807, end: 20220811

REACTIONS (2)
  - Dysgeusia [None]
  - Pancreatitis acute [None]

NARRATIVE: CASE EVENT DATE: 20220813
